FAERS Safety Report 11171433 (Version 2)
Quarter: 2015Q3

REPORT INFORMATION
  Report Type: Spontaneous
  Country: US (occurrence: US)
  Receive Date: 20150608
  Receipt Date: 20150807
  Transmission Date: 20151125
  Serious: Yes (Other)
  Sender: FDA-Public Use
  Company Number: US-PFIZER INC-2015190876

PATIENT
  Age: 63 Year
  Sex: Female

DRUGS (1)
  1. XELJANZ [Suspect]
     Active Substance: TOFACITINIB CITRATE
     Indication: RHEUMATOID ARTHRITIS
     Dosage: 5 MG, 1X/DAY
     Route: 048
     Dates: start: 201506

REACTIONS (9)
  - Balance disorder [Unknown]
  - Craniocerebral injury [Unknown]
  - Dizziness [Unknown]
  - Drug dose omission [Unknown]
  - Headache [Unknown]
  - Nausea [Unknown]
  - Memory impairment [Unknown]
  - Photosensitivity reaction [Unknown]
  - Sinusitis [Unknown]

NARRATIVE: CASE EVENT DATE: 20150716
